FAERS Safety Report 10428471 (Version 2)
Quarter: 2014Q3

REPORT INFORMATION
  Report Type: Spontaneous
  Country: US (occurrence: None)
  Receive Date: 20140829
  Receipt Date: 20140910
  Transmission Date: 20150326
  Serious: Yes (Hospitalization)
  Sender: FDA-Public Use
  Company Number: HYP201408-000057

PATIENT
  Age: 63 Year
  Sex: Male

DRUGS (9)
  1. PRAMIPEXOLE (PRAMIPEXOLE) [Concomitant]
     Active Substance: PRAMIPEXOLE
  2. REFAXIMIN (RIFAXIMIN) [Concomitant]
  3. PHENOBARBITAL (PHENOBARBITAL) [Concomitant]
     Active Substance: PHENOBARBITAL
  4. POTASSIUM CHLORIDE (POTASSIUM CHLORIDE) [Concomitant]
     Active Substance: POTASSIUM CHLORIDE
  5. METOLAZONE. [Concomitant]
     Active Substance: METOLAZONE
  6. SPIRIVA [Concomitant]
     Active Substance: TIOTROPIUM BROMIDE MONOHYDRATE
  7. RAVICTI [Suspect]
     Active Substance: GLYCEROL PHENYLBUTYRATE
     Indication: AMINO ACID METABOLISM DISORDER
     Dates: start: 201402
  8. MICONAZOLE (MICONAZLE NITRATE) [Concomitant]
  9. MINOCYCLINE (MINOCYLCINE) [Concomitant]

REACTIONS (3)
  - Duodenal fistula [None]
  - Rectal haemorrhage [None]
  - Diarrhoea haemorrhagic [None]

NARRATIVE: CASE EVENT DATE: 20140815
